FAERS Safety Report 7122041-6 (Version None)
Quarter: 2010Q4

REPORT INFORMATION
  Report Type: 
  Country: None (occurrence: None)
  Receive Date: 20101124
  Receipt Date: 20101115
  Transmission Date: 20110411
  Serious: Yes (Other)
  Sender: FDA-Public Use
  Company Number: B0681134A

PATIENT
  Sex: Male

DRUGS (4)
  1. PAXIL [Suspect]
     Indication: DEPRESSION
     Dosage: 20MG PER DAY
     Route: 048
  2. HALCION [Concomitant]
     Indication: INSOMNIA
     Dosage: .25MG PER DAY
     Route: 048
     Dates: start: 20050601
  3. ROHYPNOL [Concomitant]
     Indication: INSOMNIA
     Dosage: 2MG PER DAY
     Route: 048
  4. RHYTHMY [Concomitant]
     Indication: INSOMNIA
     Dosage: 1MG PER DAY
     Route: 048

REACTIONS (5)
  - ANXIETY [None]
  - IMPULSIVE BEHAVIOUR [None]
  - IRRITABILITY [None]
  - PYROMANIA [None]
  - TREATMENT NONCOMPLIANCE [None]
